FAERS Safety Report 4366104-7 (Version None)
Quarter: 2004Q2

REPORT INFORMATION
  Report Type: 
  Country: None (occurrence: None)
  Receive Date: 20040527
  Receipt Date: 20040413
  Transmission Date: 20050107
  Serious: Yes (Other)
  Sender: FDA-Public Use
  Company Number: PHEH2004US04168

PATIENT
  Age: 76 Year
  Sex: Male

DRUGS (3)
  1. ZELNORM [Suspect]
     Indication: GASTROOESOPHAGEAL REFLUX DISEASE
     Dosage: 2 MG, BID
     Route: 048
     Dates: start: 20040330, end: 20040401
  2. PREVACID [Concomitant]
     Indication: GASTROOESOPHAGEAL REFLUX DISEASE
     Dosage: 30 MG, QD
     Route: 048
  3. NEUPOGEN [Concomitant]
     Dosage: UNK, UNK

REACTIONS (3)
  - BLOOD URINE [None]
  - CYSTITIS RADIATION [None]
  - CYSTOSCOPY ABNORMAL [None]
